FAERS Safety Report 5130562-0 (Version None)
Quarter: 2006Q4

REPORT INFORMATION
  Report Type: 
  Country: None (occurrence: None)
  Receive Date: 20061013
  Receipt Date: 20061009
  Transmission Date: 20070319
  Serious: Yes (Death, Hospitalization, Other)
  Sender: FDA-Public Use
  Company Number: 163-21880-06070110

PATIENT
  Age: 76 Year
  Sex: Female
  Weight: 63.05 kg

DRUGS (3)
  1. REVLIMID [Suspect]
     Indication: MYELODYSPLASTIC SYNDROME
     Dosage: 5 MG, EOD, ORAL
     Route: 048
     Dates: start: 20060101, end: 20060608
  2. EXJADE [Concomitant]
  3. LASIX [Concomitant]

REACTIONS (10)
  - CEREBRAL HAEMORRHAGE [None]
  - HAEMOGLOBIN DECREASED [None]
  - HAEMOLYSIS [None]
  - HEPATIC FAILURE [None]
  - MENINGORRHAGIA [None]
  - MULTI-ORGAN FAILURE [None]
  - RENAL FAILURE [None]
  - THERAPEUTIC PRODUCT CONTAMINATION [None]
  - THROMBOCYTOPENIA [None]
  - TRANSFUSION REACTION [None]
